FAERS Safety Report 18545913 (Version 1)
Quarter: 2020Q4

REPORT INFORMATION
  Report Type: Spontaneous
  Country: BR (occurrence: BR)
  Receive Date: 20201125
  Receipt Date: 20201125
  Transmission Date: 20210114
  Serious: Yes (Life-Threatening)
  Sender: FDA-Public Use
  Company Number: BR-DRREDDYS-GPV/BRA/20/0129524

PATIENT
  Age: 80 Year
  Sex: Female

DRUGS (23)
  1. WINDUZA [Suspect]
     Active Substance: AZACITIDINE
     Dosage: C17 (D1-D5)
     Route: 058
     Dates: start: 20200622, end: 20200626
  2. VIDAZA [Concomitant]
     Active Substance: AZACITIDINE
     Dosage: C06 (D1-D7)
     Dates: start: 20190801, end: 20190809
  3. VIDAZA [Concomitant]
     Active Substance: AZACITIDINE
     Dosage: C10 (D1-D7)
     Dates: start: 20191127, end: 20191205
  4. VIDAZA [Concomitant]
     Active Substance: AZACITIDINE
     Dosage: C11 (D1-D7)
     Dates: start: 20200102, end: 20200110
  5. WINDUZA [Suspect]
     Active Substance: AZACITIDINE
     Indication: MYELODYSPLASTIC SYNDROME
     Dosage: C16 (D1-D5):
     Route: 058
     Dates: start: 20200525, end: 20200529
  6. WINDUZA [Suspect]
     Active Substance: AZACITIDINE
     Dosage: C19 (D1-D7):
     Route: 058
     Dates: start: 20200819, end: 20200827
  7. METOPROLOL. [Concomitant]
     Active Substance: METOPROLOL
     Indication: PRODUCT USED FOR UNKNOWN INDICATION
  8. VIDAZA [Concomitant]
     Active Substance: AZACITIDINE
     Dosage: C20(D1-D7)
     Dates: start: 20200916, end: 20200924
  9. VIDAZA [Concomitant]
     Active Substance: AZACITIDINE
     Dosage: C21(D1-D7)
     Dates: start: 20201014, end: 20201022
  10. LOSARTANA [Concomitant]
     Active Substance: LOSARTAN
     Indication: PRODUCT USED FOR UNKNOWN INDICATION
  11. VIDAZA [Concomitant]
     Active Substance: AZACITIDINE
     Dosage: C09 (D1-D7)
     Dates: start: 20191029, end: 20191106
  12. VIDAZA [Concomitant]
     Active Substance: AZACITIDINE
     Dosage: C14 (D1-D5)
     Dates: start: 20200330, end: 20200403
  13. VIDAZA [Concomitant]
     Active Substance: AZACITIDINE
     Dosage: C05 (D1-D7)
     Dates: start: 20190704, end: 20190712
  14. VIDAZA [Concomitant]
     Active Substance: AZACITIDINE
     Dosage: C07 (D1-D7)
     Dates: start: 20190829, end: 20190906
  15. VIDAZA [Concomitant]
     Active Substance: AZACITIDINE
     Dosage: C12 (D1-D7)
     Dates: start: 20200204, end: 20200212
  16. VIDAZA [Concomitant]
     Active Substance: AZACITIDINE
     Dosage: C13 (D1-D5)
     Dates: start: 20200302, end: 20200306
  17. VIDAZA [Concomitant]
     Active Substance: AZACITIDINE
     Dosage: C15 (D1-D5)
     Dates: start: 20200427, end: 20200504
  18. WINDUZA [Suspect]
     Active Substance: AZACITIDINE
     Dosage: C18 (D1-D7):
     Route: 058
     Dates: start: 20200722, end: 20200730
  19. VIDAZA [Concomitant]
     Active Substance: AZACITIDINE
     Dosage: C02 (D1-D7)
     Dates: start: 20190318, end: 20190326
  20. VIDAZA [Concomitant]
     Active Substance: AZACITIDINE
     Dosage: C08 (D1-D7)
     Dates: start: 20191001, end: 20191009
  21. VIDAZA [Concomitant]
     Active Substance: AZACITIDINE
     Indication: MYELODYSPLASTIC SYNDROME
     Dosage: C01 (D1-D7)
     Dates: start: 20190218, end: 20190226
  22. VIDAZA [Concomitant]
     Active Substance: AZACITIDINE
     Dosage: C03 (D1-D7)
     Dates: start: 20190422, end: 20190430
  23. VIDAZA [Concomitant]
     Active Substance: AZACITIDINE
     Dosage: C04 (D1-D7)
     Dates: start: 20190520, end: 20190528

REACTIONS (1)
  - Therapeutic product ineffective [Not Recovered/Not Resolved]

NARRATIVE: CASE EVENT DATE: 20200916
